FAERS Safety Report 8418489 (Version 4)
Quarter: 2014Q1

REPORT INFORMATION
  Report Type: Report from Study
  Country: FR (occurrence: FR)
  Receive Date: 20120221
  Receipt Date: 20140318
  Transmission Date: 20141002
  Serious: Yes (Hospitalization)
  Sender: FDA-Public Use
  Company Number: FR-ROCHE-1014057

PATIENT
  Age: 85 Year
  Sex: Male
  Weight: 69 kg

DRUGS (13)
  1. VISMODEGIB [Suspect]
     Indication: BASAL CELL CARCINOMA
     Dosage: LAST DOSE PRIOR SAE: 08/NOV/2011. TEMPORARILY INTERRUPTED.
     Route: 048
     Dates: start: 20110705
  2. VISMODEGIB [Suspect]
     Route: 048
     Dates: start: 20111111, end: 20111122
  3. FLECAINE [Concomitant]
     Indication: ARRHYTHMIA
     Route: 065
     Dates: start: 200501, end: 20111110
  4. SEROPLEX [Concomitant]
     Indication: ANTIDEPRESSANT THERAPY
     Route: 065
     Dates: start: 200801
  5. DOMPERIDONE [Concomitant]
     Indication: ANTIEMETIC SUPPORTIVE CARE
     Route: 065
     Dates: start: 199601
  6. PERMIXON [Concomitant]
     Indication: BENIGN PROSTATIC HYPERPLASIA
     Route: 065
     Dates: start: 200101
  7. LANZOR [Concomitant]
     Indication: ULCER
     Route: 065
     Dates: start: 199601
  8. TEMESTA (FRANCE) [Concomitant]
     Indication: ANXIOLYTIC THERAPY
     Route: 065
     Dates: start: 199601
  9. GAVISCON (FRANCE) [Concomitant]
     Indication: GASTROOESOPHAGEAL REFLUX DISEASE
     Route: 065
     Dates: start: 199601
  10. DAFALGAN [Concomitant]
     Indication: MYALGIA
     Route: 065
     Dates: start: 20110728
  11. PLAVIX [Concomitant]
     Indication: ANTIPLATELET THERAPY
     Route: 065
     Dates: start: 20111109
  12. PLAVIX [Concomitant]
     Route: 065
     Dates: start: 200501
  13. APROVEL [Concomitant]
     Indication: HYPERTENSION
     Route: 065
     Dates: start: 20120424

REACTIONS (2)
  - Atrial fibrillation [Recovered/Resolved with Sequelae]
  - Myocardial ischaemia [Recovered/Resolved with Sequelae]
